FAERS Safety Report 4430527-8 (Version None)
Quarter: 2004Q3

REPORT INFORMATION
  Report Type: 
  Country: None (occurrence: None)
  Receive Date: 20040721
  Receipt Date: 20031218
  Transmission Date: 20050211
  Serious: Yes (Hospitalization)
  Sender: FDA-Public Use
  Company Number: OMPQ-PR-0312S-0972(0)

PATIENT
  Age: 73 Year
  Sex: Female

DRUGS (2)
  1. OMNIPAQUE 180 [Suspect]
     Indication: CHEST PAIN
     Dosage: 90 ML, SINGLE DOSE, I.A.
     Route: 013
     Dates: start: 20031218, end: 20031218
  2. OMNIPAQUE 180 [Suspect]

REACTIONS (1)
  - ANAPHYLACTIC REACTION [None]
